FAERS Safety Report 17308072 (Version 2)
Quarter: 2020Q1

REPORT INFORMATION
  Report Type: Spontaneous
  Country: US (occurrence: US)
  Receive Date: 20200123
  Receipt Date: 20200128
  Transmission Date: 20200409
  Serious: Yes (Congenital Anomaly)
  Sender: FDA-Public Use
  Company Number: US-ABBVIE-20K-163-3244145-00

PATIENT
  Sex: Male

DRUGS (2)
  1. HUMIRA [Suspect]
     Active Substance: ADALIMUMAB
     Indication: MATERNAL EXPOSURE TIMING UNSPECIFIED
     Route: 064
     Dates: start: 200707
  2. HUMIRA [Suspect]
     Active Substance: ADALIMUMAB
     Route: 063
     Dates: start: 200707

REACTIONS (4)
  - Foetal exposure during pregnancy [Unknown]
  - Male genital examination abnormal [Unknown]
  - Cardiac perforation [Not Recovered/Not Resolved]
  - Exposure via breast milk [Unknown]
